FAERS Safety Report 5910065-3 (Version None)
Quarter: 2008Q4

REPORT INFORMATION
  Report Type: 
  Country: None (occurrence: None)
  Receive Date: 20081007
  Receipt Date: 20070824
  Transmission Date: 20090506
  Serious: No
  Sender: FDA-Public Use
  Company Number: US-ASTRAZENECA-2007UW20357

PATIENT
  Age: 61 Year
  Sex: Female
  Weight: 74.8 kg

DRUGS (5)
  1. ARIMIDEX [Suspect]
     Indication: BREAST CANCER
     Dosage: FOR 3 YEARS
     Route: 048
     Dates: start: 20040101
  2. GLUCOPHAGE [Concomitant]
  3. TRICOR [Concomitant]
  4. LIPITOR [Concomitant]
  5. IBUPROFEN [Concomitant]

REACTIONS (3)
  - ALOPECIA [None]
  - MUSCLE SPASMS [None]
  - MYALGIA [None]
